FAERS Safety Report 6203053-3 (Version None)
Quarter: 2009Q2

REPORT INFORMATION
  Report Type: 
  Country: None (occurrence: None)
  Receive Date: 20090527
  Receipt Date: 20090513
  Transmission Date: 20091009
  Serious: Yes (Hospitalization, Other)
  Sender: FDA-Public Use
  Company Number: US-RANBAXY-2009US-24092

PATIENT

DRUGS (4)
  1. CLORAZEPATE DIPOTASSIUM [Suspect]
     Indication: CONVULSION
     Dosage: 3.75 MG, TID
     Route: 048
     Dates: start: 20090425
  2. CLORAZEPATE DIPOTASSIUM [Suspect]
     Dosage: 3.75 MG, TID
     Dates: start: 20090506
  3. ATIVAN [Suspect]
     Indication: DRUG USE FOR UNKNOWN INDICATION
     Dosage: UNK
  4. TRILEPTAL [Suspect]
     Indication: DRUG USE FOR UNKNOWN INDICATION
     Dosage: UNK

REACTIONS (6)
  - CONVULSION [None]
  - DIZZINESS [None]
  - DRUG INEFFECTIVE [None]
  - FLUSHING [None]
  - GAIT DISTURBANCE [None]
  - NAUSEA [None]
